FAERS Safety Report 4846019-8 (Version None)
Quarter: 2005Q4

REPORT INFORMATION
  Report Type: 
  Country: None (occurrence: None)
  Receive Date: 20051205
  Receipt Date: 20051205
  Transmission Date: 20060501
  Serious: Yes (Life-Threatening, Disabling)
  Sender: FDA-Public Use
  Company Number: None

PATIENT
  Age: 30 Year
  Sex: Female
  Weight: 72.5755 kg

DRUGS (5)
  1. EFFEXOR [Suspect]
     Indication: ANXIETY
     Dosage: 1 ONCE A 'DAY PO
     Route: 048
     Dates: start: 20040205, end: 20051202
  2. EFFEXOR [Suspect]
     Indication: DECREASED INTEREST
     Dosage: 1 ONCE A 'DAY PO
     Route: 048
     Dates: start: 20040205, end: 20051202
  3. EFFEXOR [Suspect]
     Indication: SOMNOLENCE
     Dosage: 1 ONCE A 'DAY PO
     Route: 048
     Dates: start: 20040205, end: 20051202
  4. PROZAC [Suspect]
     Indication: DEPRESSED MOOD
     Dosage: 1 ONCE A DAY PO
     Route: 048
     Dates: start: 19900106, end: 19900922
  5. PROZAC [Suspect]
     Indication: FATIGUE
     Dosage: 1 ONCE A DAY PO
     Route: 048
     Dates: start: 19900106, end: 19900922

REACTIONS (2)
  - FEELING ABNORMAL [None]
  - SUICIDAL IDEATION [None]
